FAERS Safety Report 25063844 (Version 5)
Quarter: 2025Q3

REPORT INFORMATION
  Report Type: Report from Study
  Country: US (occurrence: US)
  Receive Date: 20250311
  Receipt Date: 20250904
  Transmission Date: 20251021
  Serious: No
  Sender: SUNOVION
  Company Number: US-SUMITOMO PHARMA SWITZERLAND GMBH-2025SPA001688

PATIENT
  Age: 73 Year
  Sex: Male

DRUGS (16)
  1. ORGOVYX [Suspect]
     Active Substance: RELUGOLIX
     Indication: Prostate cancer
     Dosage: 360 MG, SINGLE
     Route: 048
     Dates: start: 20250205, end: 20250205
  2. ORGOVYX [Suspect]
     Active Substance: RELUGOLIX
     Dosage: 120 MG, QD
     Route: 048
     Dates: start: 20250206
  3. ALPRAZOLAM [Concomitant]
     Active Substance: ALPRAZOLAM
  4. ATORVASTATIN [Concomitant]
     Active Substance: ATORVASTATIN
  5. CINNAMON [Concomitant]
     Active Substance: CINNAMON
  6. DOXYCYCLINE HYCLATE [Concomitant]
     Active Substance: DOXYCYCLINE HYCLATE
  7. LATANOPROST [Concomitant]
     Active Substance: LATANOPROST
     Route: 047
  8. LISINOPRIL AND HYDROCHLOROTHIAZIDE [Concomitant]
     Active Substance: HYDROCHLOROTHIAZIDE\LISINOPRIL
  9. MAGNESIUM [Concomitant]
     Active Substance: MAGNESIUM
  10. VITAMINS [Concomitant]
     Active Substance: VITAMINS
  11. HERBALS\TRIBULUS TERRESTRIS [Concomitant]
     Active Substance: HERBALS\TRIBULUS TERRESTRIS
  12. HERBALS\TURMERIC [Concomitant]
     Active Substance: HERBALS\TURMERIC
  13. FLOMAX [Concomitant]
     Active Substance: TAMSULOSIN HYDROCHLORIDE
  14. Saponin [Concomitant]
  15. GAS-X [Concomitant]
     Active Substance: DIMETHICONE
  16. TADALAFIL [Concomitant]
     Active Substance: TADALAFIL

REACTIONS (6)
  - Flatulence [Unknown]
  - Somnolence [Unknown]
  - Abdominal discomfort [Unknown]
  - Hot flush [Unknown]
  - Fatigue [Unknown]
  - Musculoskeletal stiffness [Unknown]
